APPROVED DRUG PRODUCT: NEOSPORIN G.U. IRRIGANT
Active Ingredient: NEOMYCIN SULFATE; POLYMYXIN B SULFATE
Strength: EQ 40MG BASE/ML;200,000 UNITS/ML
Dosage Form/Route: SOLUTION;IRRIGATION
Application: A060707 | Product #001
Applicant: MONARCH PHARMACEUTICALS LLC
Approved: Approved Prior to Jan 1, 1982 | RLD: No | RS: No | Type: DISCN